FAERS Safety Report 6585163-4 (Version None)
Quarter: 2010Q1

REPORT INFORMATION
  Report Type: 
  Country: None (occurrence: None)
  Receive Date: 20100217
  Receipt Date: 20100204
  Transmission Date: 20100710
  Serious: Yes (Other)
  Sender: FDA-Public Use
  Company Number: NL-ROCHE-685113

PATIENT
  Sex: Male
  Weight: 100 kg

DRUGS (2)
  1. LARIAM [Suspect]
     Indication: MALARIA PROPHYLAXIS
     Route: 048
     Dates: start: 19921216
  2. LARIAM [Suspect]
     Route: 048
     Dates: start: 19961114, end: 19961124

REACTIONS (2)
  - ANXIETY [None]
  - MENTAL DISORDER [None]
